FAERS Safety Report 24268598 (Version 1)
Quarter: 2024Q3

REPORT INFORMATION
  Report Type: Spontaneous
  Country: US (occurrence: US)
  Receive Date: 20240830
  Receipt Date: 20240830
  Transmission Date: 20241017
  Serious: No
  Sender: MAYNE
  Company Number: US-MAYNE PHARMA-2023MYN000610

PATIENT

DRUGS (1)
  1. ANNOVERA [Suspect]
     Active Substance: ETHINYL ESTRADIOL\SEGESTERONE ACETATE
     Indication: Contraception
     Dosage: 1 DF (ONE RING VAGINAL)
     Route: 067

REACTIONS (2)
  - Genital odour [Not Recovered/Not Resolved]
  - Discharge [Not Recovered/Not Resolved]
